FAERS Safety Report 5704195-9 (Version None)
Quarter: 2008Q2

REPORT INFORMATION
  Report Type: 
  Country: None (occurrence: None)
  Receive Date: 20080414
  Receipt Date: 20080403
  Transmission Date: 20081010
  Serious: Yes (Other)
  Sender: FDA-Public Use
  Company Number: US-JNJFOC-20080401844

PATIENT
  Sex: Female
  Weight: 86.18 kg

DRUGS (13)
  1. DURAGESIC-100 [Suspect]
     Route: 062
  2. DURAGESIC-100 [Suspect]
     Route: 062
  3. DURAGESIC-100 [Suspect]
     Indication: PAIN
     Route: 062
  4. NEURONTIN [Concomitant]
     Indication: DRUG USE FOR UNKNOWN INDICATION
     Route: 048
  5. AMARYL [Concomitant]
     Indication: DIABETES MELLITUS
     Route: 048
  6. LIPITOR [Concomitant]
     Indication: BLOOD CHOLESTEROL INCREASED
     Route: 048
  7. ACCUPRIL [Concomitant]
     Indication: HYPERTENSION
     Route: 048
  8. VICODIN [Concomitant]
     Indication: PAIN
     Route: 048
  9. PROTONIX [Concomitant]
     Indication: GASTRIC DISORDER
     Route: 048
  10. LASIX [Concomitant]
     Indication: SWELLING
     Route: 048
  11. VITAMIN B 100 [Concomitant]
     Route: 048
  12. ASCORBIC ACID [Concomitant]
     Route: 048
  13. EYEVITE [Concomitant]
     Route: 048

REACTIONS (7)
  - BLOOD COUNT ABNORMAL [None]
  - DEPRESSION [None]
  - DIABETES MELLITUS [None]
  - GAIT DISTURBANCE [None]
  - INAPPROPRIATE SCHEDULE OF DRUG ADMINISTRATION [None]
  - OEDEMA PERIPHERAL [None]
  - SPINAL DISORDER [None]
